FAERS Safety Report 6018512-6 (Version None)
Quarter: 2008Q4

REPORT INFORMATION
  Report Type: 
  Country: None (occurrence: None)
  Receive Date: 20081223
  Receipt Date: 20081219
  Transmission Date: 20090506
  Serious: Yes (Hospitalization)
  Sender: FDA-Public Use
  Company Number: US-GILEAD-2008-0019570

PATIENT
  Sex: Female
  Weight: 49.94 kg

DRUGS (10)
  1. LETAIRIS [Suspect]
     Route: 048
     Dates: start: 20080925
  2. REVATIO [Concomitant]
  3. DIGOXIN [Concomitant]
  4. SPIRIVA [Concomitant]
  5. DEMADEX [Concomitant]
  6. FLUTICASONE PROPIONATE [Concomitant]
  7. ALDACTONE [Concomitant]
  8. KEPPRA [Concomitant]
  9. PRILOSEC [Concomitant]
  10. K-DUR [Concomitant]

REACTIONS (2)
  - CONVULSION [None]
  - OEDEMA [None]
